FAERS Safety Report 19188516 (Version 1)
Quarter: 2021Q2

REPORT INFORMATION
  Report Type: Spontaneous
  Country: US (occurrence: US)
  Receive Date: 20210427
  Receipt Date: 20210427
  Transmission Date: 20210717
  Serious: Yes (Hospitalization)
  Sender: FDA-Public Use
  Company Number: None

PATIENT
  Age: 16 Year
  Sex: Female
  Weight: 29.8 kg

DRUGS (1)
  1. REMDESIVIR. [Suspect]
     Active Substance: REMDESIVIR
     Indication: COVID-19 PNEUMONIA
     Route: 042
     Dates: start: 20210423, end: 20210427

REACTIONS (4)
  - Renal tubular acidosis [None]
  - Hyperglycaemia [None]
  - Metabolic acidosis [None]
  - Glycosuria [None]

NARRATIVE: CASE EVENT DATE: 20210427
